FAERS Safety Report 4976820-1 (Version None)
Quarter: 2006Q2

REPORT INFORMATION
  Report Type: 
  Country: None (occurrence: None)
  Receive Date: 20060413
  Receipt Date: 20060405
  Transmission Date: 20061013
  Serious: Yes (Other)
  Sender: FDA-Public Use
  Company Number: 2006046991

PATIENT
  Age: 42 Year
  Sex: Female
  Weight: 68.0396 kg

DRUGS (2)
  1. BENADRYL [Suspect]
     Indication: SWELLING FACE
     Dosage: 50 MG, ORAL
     Route: 048
  2. LISTERINE WHITENING PRE-BRUSH RINSE (NO ACTIVE INGREDIENT) [Suspect]
     Indication: DENTAL DISORDER PROPHYLAXIS
     Dosage: 1/2 CAPFUL TWICE PER DAY, ORAL
     Route: 048
     Dates: start: 20060101, end: 20060211

REACTIONS (3)
  - CONDITION AGGRAVATED [None]
  - PARAESTHESIA ORAL [None]
  - SWELLING FACE [None]
